FAERS Safety Report 10719038 (Version 2)
Quarter: 2015Q1

REPORT INFORMATION
  Report Type: Spontaneous
  Country: US (occurrence: US)
  Receive Date: 20150119
  Receipt Date: 20150119
  Transmission Date: 20150721
  Serious: Yes (Hospitalization)
  Sender: FDA-Public Use
  Company Number: US-UNITED THERAPEUTICS-UNT-2014-009488

PATIENT
  Age: 63 Year
  Sex: Female
  Weight: 53.52 kg

DRUGS (4)
  1. ASPIRIN. [Concomitant]
     Active Substance: ASPIRIN
     Indication: PRODUCT USED FOR UNKNOWN INDICATION
  2. REMODULIN [Suspect]
     Active Substance: TREPROSTINIL
     Dosage: 0.105 ?G/KG, CONTINUING
     Route: 041
     Dates: start: 20130311
  3. REMODULIN [Suspect]
     Active Substance: TREPROSTINIL
     Dosage: 0.105 ?G/KG, CONTINUING
     Route: 041
     Dates: start: 20130311
  4. REMODULIN [Suspect]
     Active Substance: TREPROSTINIL
     Indication: PULMONARY ARTERIAL HYPERTENSION
     Dosage: 0.105 ?G/KG, CONTINUING
     Route: 041
     Dates: start: 20130311

REACTIONS (3)
  - Sepsis [Unknown]
  - Bacteraemia [Unknown]
  - Device related infection [Unknown]

NARRATIVE: CASE EVENT DATE: 20141010
